FAERS Safety Report 8814280 (Version 1)
Quarter: 2012Q4

REPORT INFORMATION
  Report Type: 
  Country: DE (occurrence: DE)
  Receive Date: 20120928
  Receipt Date: 20120928
  Transmission Date: 20130627
  Serious: Yes (Hospitalization)
  Sender: FDA-Public Use
  Company Number: DE-JNJFOC-20120911867

PATIENT
  Age: 76 Year
  Sex: Female

DRUGS (3)
  1. PALEXIA [Suspect]
     Indication: SCIATICA
     Route: 048
     Dates: start: 201110, end: 201110
  2. CYMBALTA [Concomitant]
     Indication: PRODUCT USED FOR UNKNOWN INDICATION
     Route: 048
  3. LYRICA [Concomitant]
     Indication: PRODUCT USED FOR UNKNOWN INDICATION
     Route: 048

REACTIONS (1)
  - Muscle contractions involuntary [Recovered/Resolved]
